FAERS Safety Report 18211524 (Version 1)
Quarter: 2020Q3

REPORT INFORMATION
  Report Type: Report from Study
  Country: None (occurrence: ES)
  Receive Date: 20200831
  Receipt Date: 20200831
  Transmission Date: 20201103
  Serious: Yes (Hospitalization)
  Sender: FDA-Public Use
  Company Number: ES-ABBVIE-20K-144-3545648-00

PATIENT
  Age: 71 Year
  Sex: Female

DRUGS (2)
  1. DUODOPA [Suspect]
     Active Substance: CARBIDOPA\LEVODOPA
  2. DUODOPA [Suspect]
     Active Substance: CARBIDOPA\LEVODOPA
     Indication: PARKINSON^S DISEASE
     Route: 050
     Dates: start: 20190220

REACTIONS (3)
  - Mobility decreased [Recovering/Resolving]
  - Fall [Recovered/Resolved]
  - Femur fracture [Recovering/Resolving]

NARRATIVE: CASE EVENT DATE: 20200715
